FAERS Safety Report 4789470-7 (Version None)
Quarter: 2005Q4

REPORT INFORMATION
  Report Type: 
  Country: None (occurrence: None)
  Receive Date: 20051004
  Receipt Date: 20051004
  Transmission Date: 20060501
  Serious: Yes (Hospitalization)
  Sender: FDA-Public Use
  Company Number: None

PATIENT
  Sex: Female
  Weight: 114 kg

DRUGS (3)
  1. ENOXAPARIN SODIUM [Suspect]
     Indication: ANTICOAGULANT THERAPY
     Dosage: 120 MG SC Q12
     Route: 058
     Dates: start: 20050325, end: 20050330
  2. ZIOVUDINE/LAMIVUDINE [Concomitant]
  3. NELFINAVIR [Concomitant]

REACTIONS (6)
  - CEREBRAL INFARCTION [None]
  - CEREBRAL ISCHAEMIA [None]
  - CEREBRAL THROMBOSIS [None]
  - COAGULATION FACTOR X LEVEL DECREASED [None]
  - DRUG EXPOSURE DURING PREGNANCY [None]
  - GRAND MAL CONVULSION [None]
